FAERS Safety Report 18432517 (Version 3)
Quarter: 2022Q1

REPORT INFORMATION
  Report Type: Spontaneous
  Country: US (occurrence: US)
  Receive Date: 20201027
  Receipt Date: 20220308
  Transmission Date: 20220423
  Serious: No
  Sender: FDA-Public Use
  Company Number: US-PFIZER INC-2020413880

PATIENT
  Age: 72 Year
  Sex: Female
  Weight: 83.91 kg

DRUGS (2)
  1. XELJANZ XR [Suspect]
     Active Substance: TOFACITINIB CITRATE
     Indication: Rheumatoid arthritis
     Dosage: 11 MG, DAILY
     Route: 048
     Dates: end: 20201021
  2. XELJANZ XR [Suspect]
     Active Substance: TOFACITINIB CITRATE
     Dosage: 11 MG, ALTERNATE DAY (ONE EVERY OTHER DAY)

REACTIONS (10)
  - Drug hypersensitivity [Unknown]
  - Nasopharyngitis [Unknown]
  - Illness [Unknown]
  - Rhinorrhoea [Unknown]
  - Eye pruritus [Unknown]
  - Osteoporosis [Unknown]
  - Body height decreased [Unknown]
  - Intentional product misuse [Unknown]
  - Memory impairment [Unknown]
  - Illness [Not Recovered/Not Resolved]

NARRATIVE: CASE EVENT DATE: 20201001
